FAERS Safety Report 22386890 (Version 2)
Quarter: 2023Q2

REPORT INFORMATION
  Report Type: Spontaneous
  Country: US (occurrence: US)
  Receive Date: 20230531
  Receipt Date: 20230612
  Transmission Date: 20230722
  Serious: Yes (Life-Threatening, Hospitalization, Other)
  Sender: FDA-Public Use
  Company Number: US-AUROBINDO-AUR-APL-2023-039147

PATIENT
  Age: 48 Year
  Sex: Male

DRUGS (6)
  1. CARVEDILOL [Suspect]
     Active Substance: CARVEDILOL
     Indication: Hypertension
     Dosage: 25 MILLIGRAM, 3 TIMES A DAY
     Route: 065
  2. CARVEDILOL [Suspect]
     Active Substance: CARVEDILOL
     Dosage: 25 MILLIGRAM, TWO TIMES A DAY
     Route: 065
  3. CARVEDILOL [Suspect]
     Active Substance: CARVEDILOL
     Dosage: 12.5 MILLIGRAM, TWO TIMES A DAY
     Route: 065
  4. FLUOXETINE [Suspect]
     Active Substance: FLUOXETINE HYDROCHLORIDE
     Indication: Bipolar disorder
     Dosage: UNK
     Route: 065
  5. EPINEPHRINE [Concomitant]
     Active Substance: EPINEPHRINE
     Indication: Hypotension
     Dosage: UNK
     Route: 065
  6. DOPAMINE [Concomitant]
     Active Substance: DOPAMINE HYDROCHLORIDE
     Indication: Hypotension
     Dosage: UNK
     Route: 065

REACTIONS (5)
  - Hypotension [Recovered/Resolved]
  - Metabolic acidosis [Recovered/Resolved]
  - Sinus bradycardia [Recovered/Resolved]
  - Drug-genetic interaction [Recovered/Resolved]
  - Drug interaction [Recovered/Resolved]
